FAERS Safety Report 4606231-X (Version None)
Quarter: 2005Q1

REPORT INFORMATION
  Report Type: 
  Country: None (occurrence: None)
  Receive Date: 20050116
  Receipt Date: 20041018
  Transmission Date: 20050727
  Serious: Yes (Other)
  Sender: FDA-Public Use
  Company Number: K200401647

PATIENT
  Age: 16 Year
  Sex: Female
  Weight: 61.2 kg

DRUGS (2)
  1. EPIPEN [Suspect]
     Indication: HYPERSENSITIVITY
     Dosage: 0.3 MG, SINGLE, INTRAMUSCULAR
     Route: 030
     Dates: start: 20041017, end: 20041017
  2. CLARITIN [Concomitant]

REACTIONS (1)
  - DRUG INEFFECTIVE [None]
